FAERS Safety Report 4346803-3 (Version None)
Quarter: 2004Q1

REPORT INFORMATION
  Report Type: 
  Country: None (occurrence: None)
  Receive Date: 20040329
  Receipt Date: 20031215
  Transmission Date: 20041129
  Serious: No
  Sender: FDA-Public Use
  Company Number: USA031254717

PATIENT
  Age: 55 Year
  Sex: Male
  Weight: 99 kg

DRUGS (11)
  1. STRATTERA [Suspect]
     Indication: ATTENTION DEFICIT/HYPERACTIVITY DISORDER
     Dosage: 80 MG/ TWICE DAY
     Dates: start: 20030701, end: 20031101
  2. COZAAR [Concomitant]
  3. ZOCOR [Concomitant]
  4. FLOMAX [Concomitant]
  5. PAXIL [Concomitant]
  6. IBUPROFEN [Concomitant]
  7. ATENOLOL [Concomitant]
  8. PRILOSEC [Concomitant]
  9. CLONOPIN (CLONAZEPAM) [Concomitant]
  10. VALIUM [Concomitant]
  11. AMBIEN [Concomitant]

REACTIONS (6)
  - DECREASED APPETITE [None]
  - ERYTHEMA [None]
  - HOT FLUSH [None]
  - HYPERHIDROSIS [None]
  - PRESCRIBED OVERDOSE [None]
  - WEIGHT DECREASED [None]
